FAERS Safety Report 9354420 (Version 1)
Quarter: 2013Q2

REPORT INFORMATION
  Report Type: Spontaneous
  Country: US (occurrence: US)
  Receive Date: 20130618
  Receipt Date: 20130618
  Transmission Date: 20140414
  Serious: Yes (Other)
  Sender: FDA-Public Use
  Company Number: US-WATSON-2013-10574

PATIENT
  Age: 69 Year
  Sex: Male
  Weight: 143 kg

DRUGS (3)
  1. ANDRODERM (WATSON LABORATORIES) [Suspect]
     Indication: BLOOD TESTOSTERONE DECREASED
     Dosage: 4 MG, DAILY
     Route: 062
     Dates: start: 20130325, end: 20130509
  2. METFORMIN [Concomitant]
     Indication: DIABETES MELLITUS
     Dosage: UNK UNK, DAILY
     Route: 048
  3. INSULIN [Concomitant]
     Indication: DIABETES MELLITUS
     Dosage: UNK UNK, DAILY
     Route: 058

REACTIONS (2)
  - Hypersensitivity [Recovered/Resolved]
  - Rash [Recovered/Resolved]
